FAERS Safety Report 8591100-3 (Version None)
Quarter: 2012Q3

REPORT INFORMATION
  Report Type: 
  Country: None (occurrence: None)
  Receive Date: 20120813
  Receipt Date: 20120806
  Transmission Date: 20120928
  Serious: Yes (Disabling)
  Sender: FDA-Public Use
  Company Number: CHPA2012US017283

PATIENT
  Age: 68 Year
  Sex: Female

DRUGS (1)
  1. PREVACID 24 HR [Suspect]
     Indication: EPIGASTRIC DISCOMFORT
     Dosage: 15 MG, QD
     Route: 048
     Dates: start: 20120528, end: 20120717

REACTIONS (10)
  - MUSCLE SPASMS [None]
  - GAIT DISTURBANCE [None]
  - FATIGUE [None]
  - TINNITUS [None]
  - BLOOD POTASSIUM DECREASED [None]
  - OFF LABEL USE [None]
  - INCORRECT DRUG ADMINISTRATION DURATION [None]
  - DYSURIA [None]
  - CONSTIPATION [None]
  - ALOPECIA [None]
